FAERS Safety Report 5459813-X (Version None)
Quarter: 2007Q3

REPORT INFORMATION
  Report Type: 
  Country: None (occurrence: None)
  Receive Date: 20070919
  Receipt Date: 20070911
  Transmission Date: 20080115
  Serious: Yes (Hospitalization, Other)
  Sender: FDA-Public Use
  Company Number: PHBS2007HR14023

PATIENT
  Age: 62 Year
  Sex: Female

DRUGS (10)
  1. CYCLOSPORINE [Suspect]
     Indication: LIVER TRANSPLANT
     Dosage: 12-15 MG/KG
  2. CYCLOSPORINE [Suspect]
     Dosage: 350 MG, BID
     Route: 065
  3. CYCLOSPORINE [Suspect]
     Dosage: 400 MG/DAY
     Route: 065
  4. CYCLOSPORINE [Suspect]
     Dosage: 200 MG/DAY
     Route: 065
  5. CYCLOSPORINE [Suspect]
     Dosage: 500 MG/D
  6. PREDNISOLONE [Concomitant]
     Indication: LIVER TRANSPLANT
     Dosage: 20 MG/DAY
     Route: 048
  7. AZATHIOPRINE [Concomitant]
     Indication: LIVER TRANSPLANT
     Dosage: 50 MG/DAY
     Route: 065
  8. DIURETICS [Concomitant]
  9. METHYLPREDNISOLONE [Concomitant]
     Indication: LIVER TRANSPLANT REJECTION
     Dosage: GRADUAL DOSE REDUCTION OVER 5 DAYS
  10. METHYLPREDNISOLONE [Concomitant]
     Dosage: 1 G, TID

REACTIONS (10)
  - ABNORMAL BEHAVIOUR [None]
  - BLOOD BILIRUBIN INCREASED [None]
  - CLAUSTROPHOBIA [None]
  - DELUSIONAL DISORDER, UNSPECIFIED TYPE [None]
  - FEAR [None]
  - LIVER TRANSPLANT REJECTION [None]
  - MAJOR DEPRESSION [None]
  - PSYCHOMOTOR HYPERACTIVITY [None]
  - SUICIDAL IDEATION [None]
  - TRANSAMINASES INCREASED [None]
